FAERS Safety Report 19109108 (Version 4)
Quarter: 2021Q4

REPORT INFORMATION
  Report Type: Other
  Country: KR (occurrence: None)
  Receive Date: 20210409
  Receipt Date: 20211106
  Transmission Date: 20220303
  Serious: Yes (Other)
  Sender: FDA-Public Use
  Company Number: KR-ROCHE-2666438

PATIENT
  Age: 67 Year
  Sex: Male
  Weight: 68 kg

DRUGS (13)
  1. ATEZOLIZUMAB [Suspect]
     Active Substance: ATEZOLIZUMAB
     Indication: Non-small cell lung cancer metastatic
     Route: 041
     Dates: start: 20200820
  2. ATEZOLIZUMAB [Suspect]
     Active Substance: ATEZOLIZUMAB
     Route: 041
     Dates: start: 20200910
  3. LACTULOSE [Concomitant]
     Active Substance: LACTULOSE
     Indication: Constipation
     Dates: start: 20200601
  4. FOLIC ACID [Concomitant]
     Active Substance: FOLIC ACID
     Indication: Anaemia
     Dates: start: 20200521
  5. GASTER [Concomitant]
     Active Substance: FAMOTIDINE
     Indication: Peptic ulcer
     Dates: start: 20200819
  6. HARNAL [Concomitant]
     Active Substance: TAMSULOSIN HYDROCHLORIDE
     Indication: Benign prostatic hyperplasia
     Dates: start: 20200823
  7. APETROL (SOUTH KOREA) [Concomitant]
     Indication: Decreased appetite
     Dates: start: 20200601
  8. ENTELON [Concomitant]
     Indication: Varicose vein
     Dates: start: 20200819, end: 20200821
  9. MYPOL (SOUTH KOREA) [Concomitant]
     Indication: Pain
     Dates: start: 20200818
  10. NALOXONE HYDROCHLORIDE\OXYCODONE HYDROCHLORIDE [Concomitant]
     Active Substance: NALOXONE HYDROCHLORIDE\OXYCODONE HYDROCHLORIDE
     Indication: Pain
     Dates: start: 20200819
  11. DICHLOZID [Concomitant]
     Indication: Oedema peripheral
     Dates: start: 20200819, end: 20200821
  12. DICHLOZID [Concomitant]
     Dates: start: 20200823, end: 20200824
  13. ULTRACET [Concomitant]
     Active Substance: ACETAMINOPHEN\TRAMADOL HYDROCHLORIDE
     Indication: Pain
     Dates: start: 20200819

REACTIONS (5)
  - Retinal vein occlusion [Recovering/Resolving]
  - Oedema peripheral [Recovering/Resolving]
  - Dysuria [Recovering/Resolving]
  - Pain [Recovering/Resolving]
  - Scrotal swelling [Not Recovered/Not Resolved]

NARRATIVE: CASE EVENT DATE: 20200820
